FAERS Safety Report 7237530-3 (Version None)
Quarter: 2011Q1

REPORT INFORMATION
  Report Type: 
  Country: None (occurrence: None)
  Receive Date: 20110121
  Receipt Date: 20110117
  Transmission Date: 20110831
  Serious: Yes (Life-Threatening, Other)
  Sender: FDA-Public Use
  Company Number: DE-ROXANE LABORATORIES, INC.-2011-RO-00073RO

PATIENT
  Age: 17 Week
  Sex: Female

DRUGS (2)
  1. PROPRANOLOL [Suspect]
     Route: 048
  2. PROPRANOLOL [Suspect]
     Indication: HAEMANGIOMA
     Route: 048

REACTIONS (3)
  - HYPERKALAEMIA [None]
  - STAPHYLOCOCCAL INFECTION [None]
  - HYPOTENSION [None]
